FAERS Safety Report 19099814 (Version 3)
Quarter: 2021Q2

REPORT INFORMATION
  Report Type: Spontaneous
  Country: US (occurrence: US)
  Receive Date: 20210407
  Receipt Date: 20210614
  Transmission Date: 20210717
  Serious: Yes (Other)
  Sender: FDA-Public Use
  Company Number: US-CIPLA LTD.-2021US02385

PATIENT

DRUGS (4)
  1. OMEPRAZOLE. [Concomitant]
     Active Substance: OMEPRAZOLE
     Indication: GASTROOESOPHAGEAL REFLUX DISEASE
     Dosage: 40 MILLIGRAM, QD, ONCE A DAY BEFORE EATING, YEARS AGO
     Route: 065
  2. CALCIUM CITRATE + D [Concomitant]
     Active Substance: CALCIUM CITRATE\CHOLECALCIFEROL
     Indication: SUPPLEMENTATION THERAPY
     Dosage: 630 MILLIGRAM, BID (TWICE A DAY)
     Route: 065
  3. VITAMIN D [VITAMIN D NOS] [Concomitant]
     Active Substance: VITAMIN D NOS
     Indication: SUPPLEMENTATION THERAPY
     Dosage: 13 MICROGRAM, QD (ONCE DAILY)
     Route: 065
  4. ALENDRONATE [Suspect]
     Active Substance: ALENDRONATE SODIUM
     Indication: OSTEOPOROSIS
     Dosage: 70 MILLIGRAM, ONCE A WEEK
     Route: 048
     Dates: start: 202011

REACTIONS (5)
  - Pain in extremity [Not Recovered/Not Resolved]
  - Product dose omission issue [Unknown]
  - Pain [Not Recovered/Not Resolved]
  - Dupuytren^s contracture [Not Recovered/Not Resolved]
  - Gastrooesophageal reflux disease [Not Recovered/Not Resolved]

NARRATIVE: CASE EVENT DATE: 2020
